FAERS Safety Report 7823907-1 (Version None)
Quarter: 2011Q4

REPORT INFORMATION
  Report Type: 
  Country: None (occurrence: None)
  Receive Date: 20111019
  Receipt Date: 20111014
  Transmission Date: 20120403
  Serious: Yes (Death, Hospitalization)
  Sender: FDA-Public Use
  Company Number: CA-SANOFI-AVENTIS-2011SA067091

PATIENT

DRUGS (1)
  1. ELOXATIN [Suspect]
     Route: 065

REACTIONS (4)
  - NAUSEA [None]
  - DEATH [None]
  - POSTERIOR REVERSIBLE ENCEPHALOPATHY SYNDROME [None]
  - BRAIN OEDEMA [None]
